FAERS Safety Report 14426859 (Version 1)
Quarter: 2018Q1

REPORT INFORMATION
  Report Type: Spontaneous
  Country: PL (occurrence: PL)
  Receive Date: 20180123
  Receipt Date: 20180123
  Transmission Date: 20180509
  Serious: Yes (Life-Threatening, Hospitalization, Other)
  Sender: FDA-Public Use
  Company Number: PL-GLAXOSMITHKLINE-PL2018GSK010328

PATIENT
  Age: 54 Year
  Sex: Female

DRUGS (1)
  1. ZINACEF [Suspect]
     Active Substance: CEFUROXIME SODIUM
     Indication: RESPIRATORY TRACT INFECTION
     Dosage: 750 MG, SINGLE,VIAL-1 DOSE
     Dates: start: 20180115, end: 20180115

REACTIONS (4)
  - Hypoaesthesia oral [Unknown]
  - Anaphylactic shock [Recovering/Resolving]
  - Loss of consciousness [Unknown]
  - Blood pressure decreased [Unknown]

NARRATIVE: CASE EVENT DATE: 20180115
